FAERS Safety Report 5256499-4 (Version None)
Quarter: 2007Q1

REPORT INFORMATION
  Report Type: 
  Country: None (occurrence: None)
  Receive Date: 20070306
  Receipt Date: 20070222
  Transmission Date: 20070707
  Serious: Yes (Other)
  Sender: FDA-Public Use
  Company Number: GB-AMGEN-UK209917

PATIENT
  Sex: Female
  Weight: 61.4 kg

DRUGS (2)
  1. NEULASTA [Suspect]
     Indication: CHEMOTHERAPY
     Route: 058
     Dates: start: 20061121, end: 20061212
  2. VINORELBINE [Concomitant]

REACTIONS (7)
  - ANOREXIA [None]
  - BLOOD URINE PRESENT [None]
  - BONE PAIN [None]
  - CHILLS [None]
  - INFLUENZA LIKE ILLNESS [None]
  - MALAISE [None]
  - MUSCLE SPASMS [None]
